FAERS Safety Report 9901692 (Version 1)
Quarter: 2014Q1

REPORT INFORMATION
  Report Type: Spontaneous
  Country: US (occurrence: US)
  Receive Date: 20140217
  Receipt Date: 20140217
  Transmission Date: 20141002
  Serious: No
  Sender: FDA-Public Use
  Company Number: US-BAYER-2014-024378

PATIENT
  Sex: Female

DRUGS (1)
  1. MAGNEVIST [Suspect]
     Dosage: UNK UNK, ONCE
     Dates: start: 201310, end: 201310

REACTIONS (3)
  - Fatigue [None]
  - Nausea [None]
  - Confusional state [None]
